FAERS Safety Report 4845284-0 (Version None)
Quarter: 2005Q4

REPORT INFORMATION
  Report Type: 
  Country: None (occurrence: None)
  Receive Date: 20051129
  Receipt Date: 20051111
  Transmission Date: 20060501
  Serious: Yes (Other)
  Sender: FDA-Public Use
  Company Number: 218620

PATIENT
  Age: 57 Year
  Sex: Female
  Weight: 107 kg

DRUGS (14)
  1. XOLAIR [Suspect]
     Indication: DRUG USE FOR UNKNOWN INDICATION
     Dosage: 225 MG, Q2W, SUBCUTANEOUS
     Route: 058
     Dates: start: 20050627, end: 20050725
  2. UNIPHYL [Concomitant]
  3. CLONIDINE [Concomitant]
  4. COZAAR [Concomitant]
  5. DEMADEX [Concomitant]
  6. PLETAL [Concomitant]
  7. PLAQUENIL [Concomitant]
  8. ZOLOFT [Concomitant]
  9. PULMICORT [Concomitant]
  10. RELAFEN [Concomitant]
  11. CENTRUM (MULTIVITAMINS NOS, MINERALS NOS) [Concomitant]
  12. OS-CAL +D (CALCIUM NOS, CHOLECALCIFEROL) [Concomitant]
  13. VITAMIN C (ASCORBIC ACID) [Concomitant]
  14. BENADRYL [Concomitant]

REACTIONS (4)
  - ANAPHYLACTIC REACTION [None]
  - ASTHENIA [None]
  - BLOOD PRESSURE FLUCTUATION [None]
  - FATIGUE [None]
